FAERS Safety Report 7659845-7 (Version None)
Quarter: 2011Q3

REPORT INFORMATION
  Report Type: 
  Country: None (occurrence: None)
  Receive Date: 20110805
  Receipt Date: 20110805
  Transmission Date: 20111222
  Serious: Yes (Other)
  Sender: FDA-Public Use
  Company Number: GB-EISAI INC-E2020-09543-SPO-GB

PATIENT
  Age: 89 Year
  Sex: Female
  Weight: 70.76 kg

DRUGS (1)
  1. ARICEPT [Suspect]
     Dosage: UNKNOWN
     Route: 048
     Dates: start: 20110110, end: 20110101

REACTIONS (3)
  - CIRCULATORY COLLAPSE [None]
  - BRADYCARDIA [None]
  - HEART RATE DECREASED [None]
